FAERS Safety Report 21378968 (Version 2)
Quarter: 2022Q4

REPORT INFORMATION
  Report Type: Report from Study
  Country: US (occurrence: US)
  Receive Date: 20220927
  Receipt Date: 20221018
  Transmission Date: 20230113
  Serious: Yes (Hospitalization, Other)
  Sender: FDA-Public Use
  Company Number: US-SAMOHPHARM-2022004373

PATIENT

DRUGS (2)
  1. CARBAGLU [Suspect]
     Active Substance: CARGLUMIC ACID
     Indication: Hyperglycinaemia
     Dosage: 500 MILLIGRAM, BID
     Dates: start: 20220903, end: 2022
  2. CARBAGLU [Suspect]
     Active Substance: CARGLUMIC ACID
     Dosage: 900 MILLIGRAM (STRESS DOSE), BID
     Dates: start: 2022

REACTIONS (1)
  - Hyperammonaemic crisis [Unknown]

NARRATIVE: CASE EVENT DATE: 20220101
